FAERS Safety Report 6585580-2 (Version None)
Quarter: 2010Q1

REPORT INFORMATION
  Report Type: 
  Country: None (occurrence: None)
  Receive Date: 20100201
  Receipt Date: 20091009
  Transmission Date: 20100710
  Serious: Yes (Other)
  Sender: FDA-Public Use
  Company Number: 8053151

PATIENT
  Sex: Female
  Weight: 63.5 kg

DRUGS (3)
  1. KEPPRA [Suspect]
     Indication: CONVULSION
     Dosage: 1500 MG BID ORAL : 1000 MG BID ORAL
     Route: 048
     Dates: end: 20090801
  2. KEPPRA [Suspect]
     Indication: CONVULSION
     Dosage: 1500 MG BID ORAL : 1000 MG BID ORAL
     Route: 048
     Dates: start: 20090801
  3. TEGRETOL [Concomitant]

REACTIONS (2)
  - GRAND MAL CONVULSION [None]
  - PETIT MAL EPILEPSY [None]
